FAERS Safety Report 24927014 (Version 3)
Quarter: 2025Q1

REPORT INFORMATION
  Report Type: Spontaneous
  Country: DE (occurrence: DE)
  Receive Date: 20250205
  Receipt Date: 20250324
  Transmission Date: 20250408
  Serious: Yes (Hospitalization, Other)
  Sender: BOEHRINGER INGELHEIM
  Company Number: DE-AMK-284364

PATIENT
  Age: 66 Year
  Sex: Male

DRUGS (5)
  1. JARDIANCE [Suspect]
     Active Substance: EMPAGLIFLOZIN
     Indication: Cardiac disorder
  2. Telmisartan/HCT 80/12,5mg [Concomitant]
     Indication: Product used for unknown indication
     Dosage: 1-0-0
     Dates: start: 202406
  3. Metoprolol succ 47,5mg [Concomitant]
     Indication: Product used for unknown indication
     Dosage: 1-0-0
     Dates: start: 202406
  4. PANTOPRAZOLE [Concomitant]
     Active Substance: PANTOPRAZOLE
     Indication: Product used for unknown indication
     Dosage: 0-0-1
     Dates: start: 202406
  5. ALLOPURINOL [Concomitant]
     Active Substance: ALLOPURINOL
     Indication: Product used for unknown indication
     Dosage: 0-1-0
     Dates: start: 202406

REACTIONS (11)
  - Blood pressure decreased [Recovering/Resolving]
  - Presyncope [Recovering/Resolving]
  - Nausea [Recovering/Resolving]
  - Dizziness [Recovering/Resolving]
  - Renal function test abnormal [Recovering/Resolving]
  - Acute kidney injury [Recovering/Resolving]
  - Nephropathy toxic [Recovering/Resolving]
  - Dehydration [Recovering/Resolving]
  - Product quality issue [Unknown]
  - Pollakiuria [Recovering/Resolving]
  - Influenza [Unknown]

NARRATIVE: CASE EVENT DATE: 20241201
